FAERS Safety Report 19282347 (Version 1)
Quarter: 2021Q2

REPORT INFORMATION
  Report Type: Other
  Country: PL (occurrence: PL)
  Receive Date: 20210521
  Receipt Date: 20210521
  Transmission Date: 20210717
  Serious: Yes (Hospitalization, Other)
  Sender: FDA-Public Use
  Company Number: PL-THE ACME LABORATORIES LTD-2110790

PATIENT
  Age: 31 Year
  Sex: Male

DRUGS (3)
  1. CHLORPROTHIXENE [Suspect]
     Active Substance: CHLORPROTHIXENE
     Route: 065
  2. ZOLPIDEM TARTRATE. [Suspect]
     Active Substance: ZOLPIDEM TARTRATE
     Indication: PRODUCT USED FOR UNKNOWN INDICATION
     Route: 065
  3. CARBAMAZEPINE. [Suspect]
     Active Substance: CARBAMAZEPINE
     Route: 065

REACTIONS (6)
  - Aspartate aminotransferase increased [Unknown]
  - Drug dependence [Unknown]
  - Rhabdomyolysis [Unknown]
  - Alanine aminotransferase increased [Unknown]
  - Toxicity to various agents [Unknown]
  - Metabolic acidosis [Unknown]
